FAERS Safety Report 5541940-X (Version None)
Quarter: 2007Q4

REPORT INFORMATION
  Report Type: 
  Country: None (occurrence: None)
  Receive Date: 20071205
  Receipt Date: 20071123
  Transmission Date: 20080405
  Serious: Yes (Death, Hospitalization)
  Sender: FDA-Public Use
  Company Number: GXKR2007BE10093

PATIENT
  Age: 52 Year
  Sex: Male

DRUGS (4)
  1. METHYLPREDNISOLONE [Suspect]
     Indication: RENAL AND PANCREAS TRANSPLANT
     Dosage: 500 MG, INTRAVENOUS; 40 MG, QD; 6 MG,QD, ORAL
     Route: 042
  2. MYCOPHENOLATE MOFETIL [Suspect]
     Indication: RENAL AND PANCREAS TRANSPLANT
     Dosage: 1 G, BID, ORAL
     Route: 048
  3. SIMULECT [Suspect]
     Indication: RENAL AND PANCREAS TRANSPLANT
     Dosage: 30 UG, INTRAVENOUS
     Route: 042
  4. TACROLIMUS [Suspect]
     Indication: RENAL AND PANCREAS TRANSPLANT
     Dosage: 12 5 UG/L, ORAL; 8 UG/L, ORAL
     Route: 048

REACTIONS (31)
  - ATELECTASIS [None]
  - BRONCHIAL DISORDER [None]
  - BRONCHOALVEOLAR LAVAGE ABNORMAL [None]
  - BRONCHOPULMONARY ASPERGILLOSIS [None]
  - CARDIAC FAILURE [None]
  - CARDIAC MURMUR [None]
  - ENTEROBACTER INFECTION [None]
  - ENTEROCOCCAL INFECTION [None]
  - FUNGAL ENDOCARDITIS [None]
  - HAEMOPTYSIS [None]
  - HYPOTENSION [None]
  - HYPOXIA [None]
  - LUNG INFILTRATION [None]
  - MECHANICAL VENTILATION [None]
  - METABOLIC ACIDOSIS [None]
  - METASTASES TO PLEURA [None]
  - NEUROPATHY [None]
  - PERITONITIS [None]
  - PNEUMONIA [None]
  - POST PROCEDURAL COMPLICATION [None]
  - PSEUDOMONAS INFECTION [None]
  - PULMONARY EMBOLISM [None]
  - RENAL FAILURE [None]
  - RESPIRATORY FAILURE [None]
  - SEPTIC SHOCK [None]
  - TACHYPNOEA [None]
  - TRICUSPID VALVE DISEASE [None]
  - TRICUSPID VALVE REPLACEMENT [None]
  - WEANING FAILURE [None]
  - WHEEZING [None]
  - WOUND DEHISCENCE [None]
